FAERS Safety Report 8210859-8 (Version None)
Quarter: 2012Q1

REPORT INFORMATION
  Report Type: 
  Country: None (occurrence: None)
  Receive Date: 20120315
  Receipt Date: 20120208
  Transmission Date: 20120608
  Serious: Yes (Hospitalization)
  Sender: FDA-Public Use
  Company Number: JP-SP-2011-03134

PATIENT
  Sex: Male

DRUGS (2)
  1. LEVOFLOXACIN [Concomitant]
  2. IMMUCYST [Suspect]
     Indication: BLADDER TRANSITIONAL CELL CARCINOMA
     Route: 043
     Dates: start: 20100526, end: 20101201

REACTIONS (5)
  - PYREXIA [None]
  - PYURIA [None]
  - BLADDER IRRITATION [None]
  - DISSEMINATED TUBERCULOSIS [None]
  - HAEMATURIA [None]
